FAERS Safety Report 12411890 (Version 1)
Quarter: 2016Q2

REPORT INFORMATION
  Report Type: Spontaneous
  Country: US (occurrence: US)
  Receive Date: 20160527
  Receipt Date: 20160527
  Transmission Date: 20160815
  Serious: Yes (Other)
  Sender: FDA-Public Use
  Company Number: US-AMGEN-USASP2016066197

PATIENT
  Age: 54 Year
  Sex: Female

DRUGS (35)
  1. BISOPROLOL /HCTZ [Concomitant]
  2. PROMETHAZINE - CODEINE [Concomitant]
     Active Substance: CODEINE\PROMETHAZINE
  3. FLUOCINONIDE. [Concomitant]
     Active Substance: FLUOCINONIDE
  4. POTASSIUM CHLORIDE. [Concomitant]
     Active Substance: POTASSIUM CHLORIDE
  5. PROLIA [Suspect]
     Active Substance: DENOSUMAB
     Indication: OSTEOPOROSIS
     Dosage: 60 MG, Q6MO
     Route: 058
     Dates: start: 201412
  6. CARAFATE [Concomitant]
     Active Substance: SUCRALFATE
  7. CLONAZEPAM. [Concomitant]
     Active Substance: CLONAZEPAM
  8. BETAMET [Concomitant]
  9. BETAMETHASONE DIPROPIONATE. [Concomitant]
     Active Substance: BETAMETHASONE DIPROPIONATE
  10. OXYCODONE [Concomitant]
     Active Substance: OXYCODONE
  11. POLYETHYLENE GLYCOL [Concomitant]
     Active Substance: POLYETHYLENE GLYCOLS
  12. VENTOLIN [Concomitant]
     Active Substance: ALBUTEROL SULFATE
  13. LIPITOR [Concomitant]
     Active Substance: ATORVASTATIN CALCIUM
  14. BENADRYL [Concomitant]
     Active Substance: DIPHENHYDRAMINE HYDROCHLORIDE
  15. ADVIL [Concomitant]
     Active Substance: IBUPROFEN
  16. HYDROCODONE BITARTRATE AND ACETAMINOPHEN [Concomitant]
     Active Substance: ACETAMINOPHEN\HYDROCODONE BITARTRATE
  17. MUPIROCIN. [Concomitant]
     Active Substance: MUPIROCIN
  18. SYMBICORT [Concomitant]
     Active Substance: BUDESONIDE\FORMOTEROL FUMARATE DIHYDRATE
  19. AZITHROMYCIN ANHYDROUS. [Concomitant]
     Active Substance: AZITHROMYCIN ANHYDROUS
  20. MORPHINE [Concomitant]
     Active Substance: MORPHINE
  21. ERYTHROMYCIN. [Concomitant]
     Active Substance: ERYTHROMYCIN
  22. XOPENEX [Concomitant]
     Active Substance: LEVALBUTEROL HYDROCHLORIDE
  23. LOSARTAN. [Concomitant]
     Active Substance: LOSARTAN
  24. HYOSCYAMINE. [Concomitant]
     Active Substance: HYOSCYAMINE
  25. METAMUCIL [Concomitant]
     Active Substance: PLANTAGO SEED
  26. ZYRTEC [Concomitant]
     Active Substance: CETIRIZINE HYDROCHLORIDE
  27. FUROSEMIDE. [Concomitant]
     Active Substance: FUROSEMIDE
  28. RELPAX [Concomitant]
     Active Substance: ELETRIPTAN HYDROBROMIDE
  29. HYDROXYZINE HCL [Concomitant]
     Active Substance: HYDROXYZINE HYDROCHLORIDE
  30. DICYCLOMINE [Concomitant]
     Active Substance: DICYCLOMINE HYDROCHLORIDE
  31. MIRALAX [Concomitant]
     Active Substance: POLYETHYLENE GLYCOL 3350
  32. ALPRAZOLAM. [Concomitant]
     Active Substance: ALPRAZOLAM
  33. CEPHALEXIN. [Concomitant]
     Active Substance: CEPHALEXIN
  34. DOXYCYCLINE MONOHYDRATE [Concomitant]
     Active Substance: DOXYCYCLINE
  35. IPRATROPIUM [Concomitant]
     Active Substance: IPRATROPIUM

REACTIONS (3)
  - Staphylococcal infection [Unknown]
  - Decreased immune responsiveness [Unknown]
  - Infection [Unknown]

NARRATIVE: CASE EVENT DATE: 201512
